FAERS Safety Report 5134010-6 (Version None)
Quarter: 2006Q4

REPORT INFORMATION
  Report Type: 
  Country: None (occurrence: None)
  Receive Date: 20061023
  Receipt Date: 20061023
  Transmission Date: 20070319
  Serious: Yes (Disabling)
  Sender: FDA-Public Use
  Company Number: None

PATIENT
  Sex: Male
  Weight: 90.7194 kg

DRUGS (1)
  1. DOXYLAMINE SUCCINATE [Suspect]
     Indication: INITIAL INSOMNIA
     Dosage: ONE PILL ONE TIME
     Dates: start: 20061004, end: 20061004

REACTIONS (1)
  - STEVENS-JOHNSON SYNDROME [None]
